FAERS Safety Report 7669262-1 (Version None)
Quarter: 2011Q3

REPORT INFORMATION
  Report Type: 
  Country: None (occurrence: None)
  Receive Date: 20110808
  Receipt Date: 20110726
  Transmission Date: 20111222
  Serious: Yes (Other)
  Sender: FDA-Public Use
  Company Number: DE-ROCHE-771496

PATIENT
  Sex: Male
  Weight: 53 kg

DRUGS (14)
  1. CELLCEPT [Suspect]
     Indication: RENAL TRANSPLANT
     Route: 048
     Dates: start: 20050613
  2. PREDNISONE [Concomitant]
     Indication: RENAL TRANSPLANT
     Route: 048
     Dates: start: 20040101
  3. CARVEDILOL [Concomitant]
  4. OLMESARTAN MEDOXOMIL [Concomitant]
  5. AMLODIPINE [Concomitant]
  6. PANTOPRAZOLE [Concomitant]
  7. SANDIMMUNE [Concomitant]
     Indication: RENAL TRANSPLANT
     Dates: start: 20040101
  8. ERGOCALCIFEROL [Concomitant]
  9. ARANESP [Concomitant]
     Route: 058
  10. MARCUMAR [Concomitant]
     Dosage: ACCORDING TO INR
     Dates: start: 20110601
  11. SANDIMMUNE [Concomitant]
  12. MESALAMINE [Concomitant]
     Dosage: IF REQUIRED
  13. PRAVASTATIN [Concomitant]
  14. TAMSULOSIN HCL [Concomitant]

REACTIONS (3)
  - ANEURYSM [None]
  - AORTIC DISSECTION [None]
  - CROHN'S DISEASE [None]
